FAERS Safety Report 9775647 (Version 3)
Quarter: 2014Q1

REPORT INFORMATION
  Report Type: Spontaneous
  Country: US (occurrence: US)
  Receive Date: 20131220
  Receipt Date: 20140115
  Transmission Date: 20141002
  Serious: No
  Sender: FDA-Public Use
  Company Number: US-GILEAD-2013-0090313

PATIENT
  Sex: Female

DRUGS (3)
  1. LETAIRIS [Suspect]
     Indication: PULMONARY ARTERIAL HYPERTENSION
     Dosage: 10 MG, QD
     Route: 048
     Dates: start: 20131118
  2. VENTAVIS [Concomitant]
  3. REVATIO [Concomitant]

REACTIONS (4)
  - Glossitis [Unknown]
  - Cough [Unknown]
  - Throat irritation [Unknown]
  - Candida infection [Unknown]
